FAERS Safety Report 4299882-6 (Version None)
Quarter: 2004Q1

REPORT INFORMATION
  Report Type: 
  Country: None (occurrence: None)
  Receive Date: 20040219
  Receipt Date: 20040219
  Transmission Date: 20041129
  Serious: Yes (Other)
  Sender: FDA-Public Use
  Company Number: None

PATIENT
  Age: 56 Year
  Sex: Female
  Weight: 86.637 kg

DRUGS (7)
  1. DURAGESIC [Suspect]
     Indication: PAIN
     Dosage: 1 PATCH EVERY 3 DAYS
     Dates: start: 20040203, end: 20040219
  2. PERCOCET [Concomitant]
  3. ZOLOFT [Concomitant]
  4. PREMARIN [Concomitant]
  5. INSULIN [Concomitant]
  6. MONOPRIL [Concomitant]
  7. ALLEGRA-D [Concomitant]

REACTIONS (8)
  - ABASIA [None]
  - ASTHENIA [None]
  - DYSPNOEA [None]
  - FEELING ABNORMAL [None]
  - FEELING HOT [None]
  - HEADACHE [None]
  - NAUSEA [None]
  - PYREXIA [None]
